FAERS Safety Report 5424487-0 (Version None)
Quarter: 2007Q3

REPORT INFORMATION
  Report Type: 
  Country: None (occurrence: None)
  Receive Date: 20070822
  Receipt Date: 20070802
  Transmission Date: 20080115
  Serious: Yes (Other)
  Sender: FDA-Public Use
  Company Number: 6036532

PATIENT
  Age: 40 Year
  Sex: Male

DRUGS (4)
  1. FLUCONAZOLE [Suspect]
     Dosage: 200 MG (200 MG, 1 IN 1 D)
  2. METHADONE HCL [Suspect]
     Dosage: 45 MG (45 MG, 1 IN 1 D)
  3. ATOVAQUONE [Concomitant]
  4. AZITHROMYCIN [Concomitant]

REACTIONS (2)
  - DRUG INTERACTION [None]
  - ELECTROCARDIOGRAM QT PROLONGED [None]
